FAERS Safety Report 10738909 (Version 3)
Quarter: 2015Q4

REPORT INFORMATION
  Report Type: Spontaneous
  Country: BR (occurrence: BR)
  Receive Date: 20150126
  Receipt Date: 20151125
  Transmission Date: 20160304
  Serious: Yes (Other)
  Sender: FDA-Public Use
  Company Number: BR-PFIZER INC-2015012400

PATIENT
  Age: 67 Year
  Sex: Female
  Weight: 61 kg

DRUGS (10)
  1. CAMPTOSAR [Suspect]
     Active Substance: IRINOTECAN HYDROCHLORIDE
     Dosage: 240.6 MG CYCLIC
     Route: 042
     Dates: end: 20141001
  2. FAULDLEUCO [Concomitant]
     Active Substance: LEUCOVORIN CALCIUM
     Dosage: 500 MG, (500MG/10ML), 1X/DAY
     Dates: end: 20141001
  3. FAULDLEUCO [Concomitant]
     Active Substance: LEUCOVORIN CALCIUM
     Indication: CHEMOTHERAPY
     Dosage: 300 MG, (300MG/30ML), 1X/DAY
     Dates: start: 20141001
  4. UNI DEXA [Concomitant]
     Dosage: STRENGTH 10MG, 2.5ML, 1X/DAY
     Route: 042
     Dates: start: 20141001, end: 20141001
  5. DIFENIDRIN [Concomitant]
     Active Substance: DIPHENHYDRAMINE
     Dosage: 50MG, AMPOULE 1ML, 1X/DAY
     Dates: start: 20141001, end: 20141001
  6. KYTRIL [Concomitant]
     Active Substance: GRANISETRON HYDROCHLORIDE
     Dosage: STRENGTH 1 MG, AMPOULE 1 ML, 1X/DAY
     Route: 042
     Dates: start: 20141001, end: 20141001
  7. FAULDFLUOR [Concomitant]
     Active Substance: FLUOROURACIL
     Indication: CHEMOTHERAPY
     Dosage: 2500MG, ^FA^ 50ML, 1X/DAY
     Dates: start: 20141001, end: 20141001
  8. CAMPTOSAR [Suspect]
     Active Substance: IRINOTECAN HYDROCHLORIDE
     Indication: ADENOCARCINOMA GASTRIC
     Dosage: 240.6 MG, CYCLIC
     Route: 042
     Dates: start: 20141001
  9. HYTROPIN [Concomitant]
     Dosage: STRENGTH 0.25MG/ML, AMPOULE OF 1ML, 1X/DAY
     Dates: start: 20141001, end: 20141001
  10. CORTISONAL [Concomitant]
     Dosage: STRENGTH 100MG

REACTIONS (2)
  - Formication [Recovered/Resolved]
  - Speech disorder [Recovered/Resolved]

NARRATIVE: CASE EVENT DATE: 20141001
